FAERS Safety Report 15620978 (Version 2)
Quarter: 2018Q4

REPORT INFORMATION
  Report Type: Spontaneous
  Country: TW (occurrence: TW)
  Receive Date: 20181115
  Receipt Date: 20181124
  Transmission Date: 20190205
  Serious: Yes (Hospitalization, Other)
  Sender: FDA-Public Use
  Company Number: TW-ACCORD-092595

PATIENT
  Age: 62 Year
  Sex: Male

DRUGS (4)
  1. VORICONAZOLE. [Interacting]
     Active Substance: VORICONAZOLE
     Indication: BRONCHOPULMONARY ASPERGILLOSIS
     Dosage: 400 MG/DAY
  2. MYCOPHENOLIC ACID. [Suspect]
     Active Substance: MYCOPHENOLIC ACID
     Indication: IMMUNOSUPPRESSANT DRUG THERAPY
  3. TACROLIMUS. [Interacting]
     Active Substance: TACROLIMUS
     Indication: IMMUNOSUPPRESSANT DRUG THERAPY
     Dosage: REDUCED FROM 1 MG/DAY TO?0.5 MG/TWICE WEEKLY
  4. CASPOFUNGIN [Concomitant]
     Active Substance: CASPOFUNGIN

REACTIONS (5)
  - Drug interaction [Unknown]
  - Drug intolerance [Unknown]
  - Bronchopulmonary aspergillosis [Recovering/Resolving]
  - Hepatotoxicity [Unknown]
  - Acute kidney injury [Unknown]
